FAERS Safety Report 6253973-9 (Version None)
Quarter: 2009Q3

REPORT INFORMATION
  Report Type: 
  Country: None (occurrence: None)
  Receive Date: 20090701
  Receipt Date: 20090701
  Transmission Date: 20100115
  Serious: No
  Sender: FDA-Public Use
  Company Number: None

PATIENT
  Age: 49 Year
  Sex: Female
  Weight: 95.2554 kg

DRUGS (1)
  1. ZICAM NASAL SPRAY OTC [Suspect]
     Indication: RHINITIS
     Dosage: AS LABEL DIRECTED WITH CHORYZA SX. NASAL
     Route: 045
     Dates: start: 20070101, end: 20080101

REACTIONS (1)
  - ANOSMIA [None]
